FAERS Safety Report 9800982 (Version 2)
Quarter: 2014Q1

REPORT INFORMATION
  Report Type: Report from Study
  Country: FR (occurrence: FR)
  Receive Date: 20140107
  Receipt Date: 20140107
  Transmission Date: 20141002
  Serious: Yes (Hospitalization)
  Sender: FDA-Public Use
  Company Number: FR-BRISTOL-MYERS SQUIBB COMPANY-16282188

PATIENT
  Age: 53 Year
  Sex: Male

DRUGS (2)
  1. IPILIMUMAB [Suspect]
     Indication: MALIGNANT MELANOMA
     Dosage: 1DF=1250. UNIT NOT SPECIFIED
     Route: 042
     Dates: start: 20110419, end: 20110510
  2. HYDROCORTISONE [Concomitant]
     Dates: start: 20111107

REACTIONS (2)
  - Endocarditis [Recovered/Resolved]
  - Pericarditis [Recovered/Resolved]
